FAERS Safety Report 5486409-6 (Version None)
Quarter: 2007Q4

REPORT INFORMATION
  Report Type: 
  Country: None (occurrence: None)
  Receive Date: 20071012
  Receipt Date: 20071008
  Transmission Date: 20080405
  Serious: Yes (Life-Threatening, Hospitalization, Other)
  Sender: FDA-Public Use
  Company Number: 163-21880-07090863

PATIENT
  Age: 82 Year
  Sex: Female

DRUGS (2)
  1. REVLIMID [Suspect]
     Indication: MYELODYSPLASTIC SYNDROME
     Dosage: 25 MG, QD, ORAL
     Route: 048
     Dates: start: 20070904
  2. ARANESP [Concomitant]

REACTIONS (2)
  - SINUS BRADYCARDIA [None]
  - SUPERIOR SAGITTAL SINUS THROMBOSIS [None]
